FAERS Safety Report 4360229-8 (Version None)
Quarter: 2004Q2

REPORT INFORMATION
  Report Type: 
  Country: None (occurrence: None)
  Receive Date: 20040513
  Receipt Date: 20040503
  Transmission Date: 20050107
  Serious: Yes (Other)
  Sender: FDA-Public Use
  Company Number: HQWYE683003MAY04

PATIENT
  Age: 39 Year
  Sex: Female

DRUGS (5)
  1. DOCITON (PROPRANOLOL HYDROCHLORIDE, TABLET) [Suspect]
     Indication: TACHYCARDIA
     Dosage: 160 MG 1X PER 1 DAY
     Route: 048
     Dates: start: 19990101, end: 20030701
  2. DOCITON (PROPRANOLOL HYDROCHLORIDE, TABLET) [Suspect]
     Indication: TACHYCARDIA
     Dosage: 160 MG 1X PER 1 DAY
     Route: 048
     Dates: start: 20030701, end: 20031101
  3. DOCITON (PROPRANOLOL HYDROCHLORIDE, TABLET) [Suspect]
     Indication: ANXIETY
     Dosage: 40 MG 1X PER 1 DAY
     Route: 048
     Dates: start: 20030301, end: 20031101
  4. DOCITON (PROPRANOLOL HYDROCHLORIDE, TABLET) [Suspect]
     Indication: DEPRESSION
     Dosage: 40 MG 1X PER 1 DAY
     Route: 048
     Dates: start: 20030301, end: 20031101
  5. LITHIUM CARBONATE [Suspect]
     Indication: DEPRESSION
     Dosage: 1000 MG 1X PER 1 DAY
     Route: 048
     Dates: start: 20030301, end: 20031101

REACTIONS (6)
  - ATAXIA [None]
  - HALLUCINATION, VISUAL [None]
  - HYPERREFLEXIA [None]
  - SEROTONIN SYNDROME [None]
  - TACHYCARDIA [None]
  - TREMOR [None]
